FAERS Safety Report 6263684-1 (Version None)
Quarter: 2009Q3

REPORT INFORMATION
  Report Type: 
  Country: None (occurrence: None)
  Receive Date: 20090710
  Receipt Date: 20090709
  Transmission Date: 20100115
  Serious: No
  Sender: FDA-Public Use
  Company Number: CA-ALLERGAN-0814530US

PATIENT
  Age: 66 Year
  Sex: Female

DRUGS (2)
  1. LUMIGAN [Suspect]
     Indication: DRUG USE FOR UNKNOWN INDICATION
     Dosage: 1 GTT, QHS
     Route: 047
     Dates: start: 20080709
  2. ACTONEL [Concomitant]

REACTIONS (1)
  - INSTILLATION SITE IRRITATION [None]
